FAERS Safety Report 19084335 (Version 2)
Quarter: 2021Q2

REPORT INFORMATION
  Report Type: Spontaneous
  Country: US (occurrence: US)
  Receive Date: 20210401
  Receipt Date: 20210416
  Transmission Date: 20210717
  Serious: Yes (Hospitalization, Other)
  Sender: FDA-Public Use
  Company Number: US-ALLERGAN-2110808US

PATIENT
  Sex: Male

DRUGS (3)
  1. LAMOTRIGINE. [Concomitant]
     Active Substance: LAMOTRIGINE
     Indication: PSYCHOTIC DISORDER
  2. BOTOX COSMETIC [Suspect]
     Active Substance: ONABOTULINUMTOXINA
     Indication: SKIN WRINKLING
     Dosage: UNK UNK, SINGLE
     Dates: start: 20210212, end: 20210212
  3. UNKNOWN FILLER [Suspect]
     Active Substance: UNSPECIFIED INGREDIENT
     Indication: SKIN WRINKLING
     Dosage: UNK UNK, SINGLE
     Dates: start: 20210212, end: 20210212

REACTIONS (12)
  - Toxicity to various agents [Unknown]
  - Headache [Unknown]
  - Swelling face [Unknown]
  - Nerve injury [Unknown]
  - Hospitalisation [Unknown]
  - Skin discharge [Recovering/Resolving]
  - Yellow skin [Recovering/Resolving]
  - Drug ineffective [Unknown]
  - Eye swelling [Recovering/Resolving]
  - Injection site scar [Unknown]
  - Gangrene [Unknown]
  - Skin necrosis [Recovering/Resolving]

NARRATIVE: CASE EVENT DATE: 20210214
